FAERS Safety Report 10684894 (Version 4)
Quarter: 2017Q1

REPORT INFORMATION
  Report Type: Spontaneous
  Country: JP (occurrence: JP)
  Receive Date: 20141231
  Receipt Date: 20170330
  Transmission Date: 20170428
  Serious: Yes (Hospitalization, Other)
  Sender: FDA-Public Use
  Company Number: JP-SA-2014SA074133

PATIENT
  Age: 74 Year
  Sex: Male

DRUGS (10)
  1. CLOPIDOGREL BISULFATE. [Suspect]
     Active Substance: CLOPIDOGREL BISULFATE
     Indication: ANTIPLATELET THERAPY
     Route: 048
  2. CANDESARTAN CILEXETIL. [Suspect]
     Active Substance: CANDESARTAN CILEXETIL
     Route: 048
  3. CILOSTAZOL. [Suspect]
     Active Substance: CILOSTAZOL
     Indication: ANTIPLATELET THERAPY
     Route: 065
  4. ROSUVASTATIN. [Suspect]
     Active Substance: ROSUVASTATIN
     Route: 065
  5. ASPIRIN. [Suspect]
     Active Substance: ASPIRIN
     Route: 065
  6. ASPIRIN. [Suspect]
     Active Substance: ASPIRIN
     Route: 065
  7. LANSOPRAZOLE. [Suspect]
     Active Substance: LANSOPRAZOLE
     Route: 065
  8. SARPOGRELATE [Suspect]
     Active Substance: SARPOGRELATE
     Route: 065
  9. SARPOGRELATE [Suspect]
     Active Substance: SARPOGRELATE
     Route: 065
  10. BISOPROLOL [Concomitant]
     Active Substance: BISOPROLOL
     Route: 065

REACTIONS (10)
  - Blood pressure systolic decreased [Recovered/Resolved]
  - Vascular stent thrombosis [Recovered/Resolved]
  - Heart rate decreased [Recovered/Resolved]
  - Intestinal haemorrhage [Unknown]
  - Melaena [Unknown]
  - Agranulocytosis [Recovered/Resolved]
  - Chest pain [Recovered/Resolved]
  - Shock haemorrhagic [Unknown]
  - Oropharyngeal pain [Recovered/Resolved]
  - Oesophageal candidiasis [Recovered/Resolved]
